FAERS Safety Report 6020622-4 (Version None)
Quarter: 2008Q4

REPORT INFORMATION
  Report Type: 
  Country: None (occurrence: None)
  Receive Date: 20081222
  Receipt Date: 20081211
  Transmission Date: 20090506
  Serious: Yes (Hospitalization)
  Sender: FDA-Public Use
  Company Number: 6047680

PATIENT
  Age: 74 Year
  Sex: Female

DRUGS (12)
  1. BISOPROLOL FUMARATE [Suspect]
     Indication: HYPERTENSION
     Dosage: 1 DOSAGE FORMS (1 DOSAGE FORMS, 1 IN 1 D) ORAL
     Route: 048
  2. AUGMENTIN '200' [Suspect]
     Indication: LUNG DISORDER
     Dosage: 3 GM (1 GM, 3 IN 1 D) ORAL
     Route: 048
     Dates: start: 20080905, end: 20080925
  3. DEPAKENE [Concomitant]
  4. RAMIPRIL [Concomitant]
  5. ADANCOR  (NICORANDIL) [Concomitant]
  6. FONZYLANE (BUFLOMEDIL HYDROCHLORIDE) [Concomitant]
  7. KARDEGIC (75 MG, POWDER FOR ORAL SOLUTION) (ACETYLSALICYLATE LYSINE) [Concomitant]
  8. PLAVIX [Concomitant]
  9. CRESTOR [Concomitant]
  10. ATHYMIL (10 MG, TABLET) (MIANSERIN HYDROCHLORIDE) [Concomitant]
  11. LANTUS [Concomitant]
  12. HUMALOG (SOLUTION FOR INJECTION) (INSULIN) [Concomitant]

REACTIONS (2)
  - BLOOD CREATININE INCREASED [None]
  - HAEMOLYTIC ANAEMIA [None]
